FAERS Safety Report 21947074 (Version 2)
Quarter: 2023Q2

REPORT INFORMATION
  Report Type: Report from Study
  Country: DE (occurrence: DE)
  Receive Date: 20230202
  Receipt Date: 20230512
  Transmission Date: 20230721
  Serious: Yes (Hospitalization)
  Sender: FDA-Public Use
  Company Number: DE-002147023-NVSC2023DE013080

PATIENT
  Sex: Male

DRUGS (7)
  1. UNSPECIFIED INGREDIENT [Suspect]
     Active Substance: UNSPECIFIED INGREDIENT
     Dosage: UNK
  2. METHOTREXATE SODIUM [Suspect]
     Active Substance: METHOTREXATE SODIUM
     Dosage: 15 MG, QW
     Route: 065
  3. METHOTREXATE SODIUM [Suspect]
     Active Substance: METHOTREXATE SODIUM
     Dosage: 10 MG
     Route: 065
  4. METHOTREXATE SODIUM [Suspect]
     Active Substance: METHOTREXATE SODIUM
     Dosage: 15 MG
     Route: 065
  5. ERELZI [Suspect]
     Active Substance: ETANERCEPT-SZZS
     Indication: Rheumatoid arthritis
     Dosage: 50 MG, QW (EVERY 7 DAYS)
     Route: 065
     Dates: start: 202105, end: 20220221
  6. ERELZI [Suspect]
     Active Substance: ETANERCEPT-SZZS
     Dosage: 50 MG, QW (EVERY 7 DAYS)
     Route: 065
     Dates: start: 20220509
  7. ORENCIA [Suspect]
     Active Substance: ABATACEPT
     Dosage: 125 MG
     Route: 065
     Dates: start: 202006, end: 202010

REACTIONS (5)
  - Cellulitis [Unknown]
  - Spinal cord injury [Unknown]
  - Peripheral artery occlusion [Unknown]
  - Coronary artery stenosis [Recovered/Resolved]
  - Coronary artery stenosis [Recovered/Resolved]

NARRATIVE: CASE EVENT DATE: 20220228
